FAERS Safety Report 17867887 (Version 1)
Quarter: 2020Q2

REPORT INFORMATION
  Report Type: Spontaneous
  Country: DE (occurrence: DE)
  Receive Date: 20200606
  Receipt Date: 20200606
  Transmission Date: 20200714
  Serious: Yes (Hospitalization)
  Sender: FDA-Public Use
  Company Number: DE-AUROBINDO-AUR-APL-2020-027106

PATIENT
  Age: 51 Year
  Sex: Male
  Weight: 85 kg

DRUGS (1)
  1. IBUPROFEN. [Suspect]
     Active Substance: IBUPROFEN
     Indication: HEADACHE
     Dosage: UNK
     Route: 048
     Dates: start: 20180101, end: 20200501

REACTIONS (9)
  - Liver function test increased [Recovered/Resolved]
  - Pruritus [Recovering/Resolving]
  - Pain [Unknown]
  - Chills [Unknown]
  - Pruritus [Recovering/Resolving]
  - Drug eruption [Recovered/Resolved]
  - Swelling [Unknown]
  - Drug hypersensitivity [Recovered/Resolved]
  - Lipase increased [Unknown]

NARRATIVE: CASE EVENT DATE: 202005
